FAERS Safety Report 6905840-2 (Version None)
Quarter: 2010Q3

REPORT INFORMATION
  Report Type: 
  Country: None (occurrence: None)
  Receive Date: 20100802
  Receipt Date: 20100802
  Transmission Date: 20110219
  Serious: Yes (Life-Threatening, Hospitalization, Disabling)
  Sender: FDA-Public Use
  Company Number: None

PATIENT
  Age: 28 Year
  Sex: Female
  Weight: 73.9363 kg

DRUGS (1)
  1. PREDNISONE [Suspect]
     Indication: BEHCET'S SYNDROME
     Dosage: TAPERED 80 MG LONG TERM BY MOUTH SINCE 1994-95
     Route: 048

REACTIONS (3)
  - ADRENAL INSUFFICIENCY [None]
  - OSTEONECROSIS [None]
  - TYPE 1 DIABETES MELLITUS [None]
